FAERS Safety Report 25146344 (Version 1)
Quarter: 2025Q2

REPORT INFORMATION
  Report Type: Spontaneous
  Country: CH (occurrence: CH)
  Receive Date: 20250401
  Receipt Date: 20250401
  Transmission Date: 20250717
  Serious: Yes (Hospitalization, Other)
  Sender: AMGEN
  Company Number: None

PATIENT
  Age: 41 Year
  Sex: Male
  Weight: 65.6 kg

DRUGS (12)
  1. VECTIBIX [Suspect]
     Active Substance: PANITUMUMAB
     Indication: Colon cancer metastatic
     Route: 040
     Dates: start: 20241015, end: 20250226
  2. DOXYCYCLINE [Suspect]
     Active Substance: DOXYCYCLINE
     Indication: Colon cancer metastatic
     Dosage: 100 MILLIGRAM, Q12H
     Route: 048
     Dates: start: 20241015
  3. ELOXATIN [Suspect]
     Active Substance: OXALIPLATIN
     Indication: Colon cancer metastatic
     Route: 040
     Dates: start: 20241015, end: 20250226
  4. FLUOROURACIL [Suspect]
     Active Substance: FLUOROURACIL
     Indication: Colon cancer metastatic
     Route: 040
     Dates: start: 20241015, end: 20250226
  5. LEUCOVORIN [Suspect]
     Active Substance: LEUCOVORIN\LEUCOVORIN CALCIUM
     Indication: Colon cancer metastatic
     Route: 040
     Dates: start: 20241015, end: 20250226
  6. Monovo [Concomitant]
     Route: 061
  7. Anesderm [Concomitant]
     Route: 061
  8. DAFALGAN [Concomitant]
     Active Substance: ACETAMINOPHEN
     Route: 048
  9. IMODIUM [Concomitant]
     Active Substance: LOPERAMIDE HYDROCHLORIDE
     Route: 048
  10. UREA [Concomitant]
     Active Substance: UREA
     Route: 061
  11. XARELTO [Concomitant]
     Active Substance: RIVAROXABAN
     Dosage: 20 MILLIGRAM, QD (PAUSED)
     Route: 048
  12. DEXAMETHASONE [Concomitant]
     Active Substance: DEXAMETHASONE

REACTIONS (2)
  - Haemophagocytic lymphohistiocytosis [Recovering/Resolving]
  - Haemophagocytic lymphohistiocytosis [Recovering/Resolving]

NARRATIVE: CASE EVENT DATE: 20250227
